FAERS Safety Report 19487203 (Version 2)
Quarter: 2021Q3

REPORT INFORMATION
  Report Type: Spontaneous
  Country: GR (occurrence: GR)
  Receive Date: 20210702
  Receipt Date: 20210720
  Transmission Date: 20211014
  Serious: Yes (Other)
  Sender: FDA-Public Use
  Company Number: NVSC2021GR144784

PATIENT
  Age: 89 Year
  Sex: Female

DRUGS (1)
  1. REVOLADE [Suspect]
     Active Substance: ELTROMBOPAG OLAMINE
     Indication: APLASTIC ANAEMIA
     Dosage: 75 MG, QD
     Route: 048

REACTIONS (6)
  - Hepatic cirrhosis [Unknown]
  - Hepatic enzyme increased [Recovering/Resolving]
  - Portal vein dilatation [Not Recovered/Not Resolved]
  - Hypotension [Recovered/Resolved]
  - Hepatomegaly [Not Recovered/Not Resolved]
  - White blood cell count decreased [Recovered/Resolved]
